FAERS Safety Report 17565835 (Version 1)
Quarter: 2020Q1

REPORT INFORMATION
  Report Type: Report from Study
  Country: CA (occurrence: CA)
  Receive Date: 20200320
  Receipt Date: 20200320
  Transmission Date: 20200409
  Serious: Yes (Other)
  Sender: FDA-Public Use
  Company Number: CA-JNJFOC-20180613004

PATIENT
  Age: 44 Year
  Sex: Male

DRUGS (4)
  1. STELARA [Suspect]
     Active Substance: USTEKINUMAB
     Route: 058
     Dates: start: 20180611
  2. STELARA [Suspect]
     Active Substance: USTEKINUMAB
     Route: 058
     Dates: start: 20180416
  3. STELARA [Suspect]
     Active Substance: USTEKINUMAB
     Indication: CROHN^S DISEASE
     Dosage: STRENGTH = 90 MG?START DATE ALSO REPORTED PREVIOUSLY AS 16-APR-2018
     Route: 058
     Dates: start: 20180412
  4. STELARA [Suspect]
     Active Substance: USTEKINUMAB
     Route: 058
     Dates: start: 20180604

REACTIONS (17)
  - Crohn^s disease [Unknown]
  - Off label use [Unknown]
  - Gastrooesophageal reflux disease [Unknown]
  - Tremor [Unknown]
  - Gastroenteritis viral [Unknown]
  - Dyspnoea [Unknown]
  - Scar [Unknown]
  - Abdominal pain [Recovered/Resolved]
  - Pyrexia [Unknown]
  - Fatigue [Unknown]
  - Nausea [Not Recovered/Not Resolved]
  - Frequent bowel movements [Recovered/Resolved]
  - Pharyngitis [Unknown]
  - Malaise [Recovering/Resolving]
  - Asthenia [Unknown]
  - General physical health deterioration [Recovered/Resolved]
  - Product use issue [Unknown]

NARRATIVE: CASE EVENT DATE: 2018
